FAERS Safety Report 13162613 (Version 2)
Quarter: 2017Q1

REPORT INFORMATION
  Report Type: Spontaneous
  Country: IT (occurrence: IT)
  Receive Date: 20170130
  Receipt Date: 20170130
  Transmission Date: 20170428
  Serious: Yes (Other)
  Sender: FDA-Public Use
  Company Number: IT-TEVA-731796ACC

PATIENT
  Age: 78 Year
  Sex: Male

DRUGS (4)
  1. FLUOROURACILE [Suspect]
     Active Substance: FLUOROURACIL
     Dosage: (OVER 46 H BY CONTINUOUS INFUSION) (REPEATED EVERY 14 DAYS, FOR 12ADMINISTRATION)
     Route: 042
  2. FLUOROURACILE [Suspect]
     Active Substance: FLUOROURACIL
     Indication: ADENOCARCINOMA GASTRIC
     Dosage: (REPEATED EVERY 14 DAYS, FOR 12 ADMINISTRATIONS)
     Route: 040
  3. OXALIPLATINO [Suspect]
     Active Substance: OXALIPLATIN
     Indication: ADENOCARCINOMA GASTRIC
     Dosage: (REPEATED EVERY 14 DAYS, FOR 12 ADMINISTRATIONS)
     Route: 042
  4. LEUCOVORIN. [Suspect]
     Active Substance: LEUCOVORIN
     Indication: ADENOCARCINOMA GASTRIC
     Route: 042

REACTIONS (2)
  - Neurotoxicity [Unknown]
  - Neutropenia [Unknown]
